FAERS Safety Report 8984768 (Version 1)
Quarter: 2012Q4

REPORT INFORMATION
  Report Type: Spontaneous
  Country: US (occurrence: None)
  Receive Date: 20121214
  Receipt Date: 20121214
  Transmission Date: 20130627
  Serious: Yes (Hospitalization, Other)
  Sender: FDA-Public Use
  Company Number: 2012P1066608

PATIENT
  Age: 62 Year
  Sex: Male

DRUGS (3)
  1. INFUMORPH [Suspect]
  2. BACLOFEN [Suspect]
  3. CLONIDINE [Suspect]

REACTIONS (1)
  - Overdose [None]
